FAERS Safety Report 24227071 (Version 1)
Quarter: 2024Q3

REPORT INFORMATION
  Report Type: Spontaneous
  Country: CA (occurrence: CA)
  Receive Date: 20240820
  Receipt Date: 20240820
  Transmission Date: 20241016
  Serious: Yes (Life-Threatening, Hospitalization)
  Sender: AMERICAN REGENT
  Company Number: CA-AMERICAN REGENT INC-2024003101

PATIENT
  Age: 35 Year
  Sex: Female

DRUGS (1)
  1. VENOFER [Suspect]
     Active Substance: IRON SUCROSE
     Indication: Product used for unknown indication
     Dosage: 400 MILLIGRAM
     Route: 042

REACTIONS (3)
  - Tachycardia [Recovered/Resolved]
  - Dyspnoea [Recovered/Resolved]
  - Hypotension [Recovered/Resolved]
